FAERS Safety Report 5986045-9 (Version None)
Quarter: 2008Q4

REPORT INFORMATION
  Report Type: 
  Country: None (occurrence: None)
  Receive Date: 20081203
  Receipt Date: 20081203
  Transmission Date: 20090506
  Serious: Yes (Other)
  Sender: FDA-Public Use
  Company Number: None

PATIENT
  Age: 50 Year
  Sex: Female
  Weight: 47.1741 kg

DRUGS (2)
  1. BUPROPRION HCL XL 300MG TEVA [Suspect]
     Indication: DEPRESSION
     Dosage: 300MG  1X DAILY PO
     Route: 048
     Dates: start: 20070210, end: 20070324
  2. BUPROPRION HCL XL 300MG ANCHEN [Suspect]
     Indication: DEPRESSION
     Dosage: 300MG 1X DAILY PO
     Route: 048
     Dates: start: 20081114, end: 20081201

REACTIONS (3)
  - AGITATION [None]
  - FEELING ABNORMAL [None]
  - PRODUCT QUALITY ISSUE [None]
